FAERS Safety Report 23518227 (Version 3)
Quarter: 2024Q1

REPORT INFORMATION
  Report Type: Report from Study
  Country: CA (occurrence: CA)
  Receive Date: 20240213
  Receipt Date: 20240228
  Transmission Date: 20240410
  Serious: Yes (Other)
  Sender: FDA-Public Use
  Company Number: CA-JNJFOC-20240210135

PATIENT
  Age: 26 Year
  Sex: Male

DRUGS (2)
  1. REMICADE [Suspect]
     Active Substance: INFLIXIMAB
     Indication: Hidradenitis
     Route: 041
     Dates: start: 20200602
  2. REMICADE [Suspect]
     Active Substance: INFLIXIMAB
     Route: 041
     Dates: start: 20200602

REACTIONS (3)
  - Herpes zoster [Recovering/Resolving]
  - Hidradenitis [Unknown]
  - Off label use [Unknown]

NARRATIVE: CASE EVENT DATE: 20240204
